FAERS Safety Report 7954264-8 (Version None)
Quarter: 2011Q4

REPORT INFORMATION
  Report Type: 
  Country: None (occurrence: None)
  Receive Date: 20111129
  Receipt Date: 20111122
  Transmission Date: 20120403
  Serious: Yes (Death, Hospitalization)
  Sender: FDA-Public Use
  Company Number: 2011001768

PATIENT
  Age: 64 Year
  Sex: Male

DRUGS (1)
  1. TARCEVA [Suspect]
     Indication: LUNG CARCINOMA CELL TYPE UNSPECIFIED STAGE IV
     Dosage: 100 MG, UID/QD, ORAL
     Route: 048
     Dates: start: 20110311

REACTIONS (10)
  - RESPIRATORY FAILURE [None]
  - RASH [None]
  - PNEUMONIA [None]
  - INCORRECT DOSE ADMINISTERED [None]
  - ASTHENIA [None]
  - PERIORBITAL OEDEMA [None]
  - MALIGNANT PLEURAL EFFUSION [None]
  - CONDITION AGGRAVATED [None]
  - FACE OEDEMA [None]
  - LUNG NEOPLASM MALIGNANT [None]
